FAERS Safety Report 25611372 (Version 2)
Quarter: 2025Q4

REPORT INFORMATION
  Report Type: Spontaneous
  Country: US (occurrence: US)
  Receive Date: 20250728
  Receipt Date: 20251002
  Transmission Date: 20260119
  Serious: No
  Sender: SANOFI AVENTIS
  Company Number: US-SA-2025SA214756

PATIENT
  Age: 44 Year
  Sex: Female

DRUGS (4)
  1. DUPIXENT [Suspect]
     Active Substance: DUPILUMAB
     Indication: Neurodermatitis
     Dosage: 600 MG, 1X
     Route: 058
     Dates: start: 202505, end: 202505
  2. DUPIXENT [Suspect]
     Active Substance: DUPILUMAB
     Indication: Dermatitis
     Dosage: 300 MG, QOW
     Route: 058
  3. ACTEMRA [Concomitant]
     Active Substance: TOCILIZUMAB
     Indication: Still^s disease
     Dosage: UNK
  4. ACTEMRA [Concomitant]
     Active Substance: TOCILIZUMAB
     Indication: Juvenile idiopathic arthritis

REACTIONS (4)
  - Mood altered [Unknown]
  - Nausea [Unknown]
  - Intentional dose omission [Unknown]
  - Product use in unapproved indication [Unknown]

NARRATIVE: CASE EVENT DATE: 20250101
